FAERS Safety Report 7677844-6 (Version None)
Quarter: 2011Q3

REPORT INFORMATION
  Report Type: 
  Country: None (occurrence: None)
  Receive Date: 20110811
  Receipt Date: 20110808
  Transmission Date: 20111222
  Serious: Yes (Hospitalization)
  Sender: FDA-Public Use
  Company Number: US-BAYER-2011-070805

PATIENT
  Sex: Female

DRUGS (1)
  1. YAZ [Suspect]
     Dosage: UNK
     Dates: start: 20070901, end: 20090901

REACTIONS (9)
  - LOSS OF CONSCIOUSNESS [None]
  - PNEUMOTHORAX [None]
  - PAIN [None]
  - INJURY [None]
  - DYSPNOEA [None]
  - ANHEDONIA [None]
  - PULMONARY EMBOLISM [None]
  - ANXIETY [None]
  - FALL [None]
